FAERS Safety Report 20606870 (Version 1)
Quarter: 2022Q1

REPORT INFORMATION
  Report Type: Spontaneous
  Country: US (occurrence: None)
  Receive Date: 20220316
  Receipt Date: 20220316
  Transmission Date: 20220424
  Serious: No
  Sender: FDA-Public Use
  Company Number: None

PATIENT
  Sex: Female

DRUGS (1)
  1. HUMIRA [Suspect]
     Active Substance: ADALIMUMAB
     Indication: Crohn^s disease
     Dosage: 40MF/0.4ML EVERY 14 DAYS ?
     Route: 058
     Dates: start: 20210120

REACTIONS (2)
  - Therapeutic product effect decreased [None]
  - Insurance issue [None]
